FAERS Safety Report 4765933-5 (Version None)
Quarter: 2005Q3

REPORT INFORMATION
  Report Type: 
  Country: None (occurrence: None)
  Receive Date: 20050912
  Receipt Date: 20050909
  Transmission Date: 20060218
  Serious: Yes (Life-Threatening, Hospitalization, Other)
  Sender: FDA-Public Use
  Company Number: PHBS2005CH13187

PATIENT
  Age: 37 Year
  Sex: Male

DRUGS (8)
  1. CONCERTA [Suspect]
     Indication: ABNORMAL BEHAVIOUR
     Dosage: 70 MG/DAY
     Dates: end: 20050326
  2. CONCERTA [Suspect]
     Dosage: 18 MG/D
     Dates: start: 20050401
  3. METHADON STREULI [Suspect]
     Indication: DRUG ABUSER
     Dosage: 175 MG, BID
     Dates: end: 20050326
  4. MARCOUMAR [Concomitant]
     Indication: PULMONARY EMBOLISM
     Dosage: 3 MG/DAY
     Dates: start: 20050215, end: 20050326
  5. MARCOUMAR [Concomitant]
     Dates: start: 20050401
  6. REMERON [Concomitant]
  7. RITALIN [Suspect]
     Indication: ABNORMAL BEHAVIOUR
     Dosage: 10 MG/DAY
     Dates: end: 20050326
  8. RITALIN [Suspect]
     Dosage: 10 MG/D
     Dates: start: 20050401

REACTIONS (6)
  - ELECTROCARDIOGRAM QT CORRECTED INTERVAL PROLONGED [None]
  - PULMONARY EMBOLISM [None]
  - SYNCOPE [None]
  - TORSADE DE POINTES [None]
  - VENTRICULAR ARRHYTHMIA [None]
  - VENTRICULAR EXTRASYSTOLES [None]
